FAERS Safety Report 4437938-5 (Version None)
Quarter: 2004Q3

REPORT INFORMATION
  Report Type: 
  Country: None (occurrence: None)
  Receive Date: 20040831
  Receipt Date: 20040825
  Transmission Date: 20050211
  Serious: Yes (Death, Hospitalization)
  Sender: FDA-Public Use
  Company Number: DE-GLAXOSMITHKLINE-A0523661A

PATIENT
  Age: 64 Year
  Sex: Male

DRUGS (9)
  1. NAVELBINE [Suspect]
     Dosage: 60MGM2 WEEKLY
     Route: 048
     Dates: start: 20040331, end: 20040408
  2. MARCUMAR [Concomitant]
  3. MORPHINE SULFATE [Concomitant]
  4. FOSAMAX [Concomitant]
  5. PANTOPRAZOLE SODIUM [Concomitant]
  6. TOREM [Concomitant]
  7. SPIRIVA [Concomitant]
  8. LAXOBERON [Concomitant]
  9. LACTULOSE [Concomitant]

REACTIONS (6)
  - DEHYDRATION [None]
  - DIARRHOEA [None]
  - NEOPLASM PROGRESSION [None]
  - PERIPHERAL ISCHAEMIA [None]
  - RENAL FAILURE ACUTE [None]
  - RESPIRATORY FAILURE [None]
